FAERS Safety Report 12314655 (Version 1)
Quarter: 2016Q2

REPORT INFORMATION
  Report Type: Spontaneous
  Country: CA (occurrence: CA)
  Receive Date: 20160428
  Receipt Date: 20160428
  Transmission Date: 20160815
  Serious: Yes (Other)
  Sender: FDA-Public Use
  Company Number: CA-BAYER-2016-081528

PATIENT
  Age: 21 Year
  Sex: Female
  Weight: 73 kg

DRUGS (1)
  1. YAZ [Suspect]
     Active Substance: DROSPIRENONE\ETHINYL ESTRADIOL
     Indication: CONTRACEPTION
     Dosage: 1 DF, QD
     Route: 048

REACTIONS (5)
  - Vaginal haemorrhage [Unknown]
  - Headache [Unknown]
  - Breast pain [Unknown]
  - Limb discomfort [Unknown]
  - Chest pain [Unknown]
